FAERS Safety Report 23065787 (Version 1)
Quarter: 2023Q4

REPORT INFORMATION
  Report Type: Report from Study
  Country: GB (occurrence: GB)
  Receive Date: 20231014
  Receipt Date: 20231014
  Transmission Date: 20240109
  Serious: Yes (Hospitalization)
  Sender: FDA-Public Use
  Company Number: GB-002147023-NVSC2023GB027346

PATIENT
  Sex: Male

DRUGS (1)
  1. MAYZENT [Suspect]
     Active Substance: SIPONIMOD
     Indication: Multiple sclerosis
     Dosage: UNK UNK, QD (TITRATION PERIOD, MISSED DAY 2 OUT - IT WAS THEN ADMINISTERED ON THE THIRD DAY)
     Route: 048
     Dates: start: 20230131

REACTIONS (3)
  - Loss of consciousness [Unknown]
  - Hypertension [Recovered/Resolved]
  - Drug titration error [Recovered/Resolved]

NARRATIVE: CASE EVENT DATE: 20230131
